FAERS Safety Report 9916930 (Version 1)
Quarter: 2014Q1

REPORT INFORMATION
  Report Type: Report from Study
  Country: DE (occurrence: DE)
  Receive Date: 20140221
  Receipt Date: 20140221
  Transmission Date: 20141002
  Serious: Yes (Other)
  Sender: FDA-Public Use
  Company Number: DE-GE HEALTHCARE MEDICAL DIAGNOSTICS-VISP-PR-1402S-0037

PATIENT
  Age: 81 Year
  Sex: Male
  Weight: 80 kg

DRUGS (2)
  1. VISIPAQUE [Suspect]
     Indication: MASS
     Route: 042
     Dates: start: 20140204, end: 20140204
  2. VISIPAQUE [Suspect]
     Indication: DIAGNOSTIC PROCEDURE

REACTIONS (3)
  - Eyelid oedema [Recovered/Resolved]
  - Pruritus [Recovered/Resolved]
  - Erythema [Recovered/Resolved]
